FAERS Safety Report 26007651 (Version 3)
Quarter: 2025Q4

REPORT INFORMATION
  Report Type: Spontaneous
  Country: JP (occurrence: JP)
  Receive Date: 20251106
  Receipt Date: 20251222
  Transmission Date: 20260118
  Serious: Yes (Life-Threatening, Other)
  Sender: ALEXION PHARMACEUTICALS
  Company Number: JP-ASTRAZENECA-202510JPN031634JP

PATIENT
  Age: 57 Year
  Sex: Female
  Weight: 55.4 kg

DRUGS (4)
  1. IMFINZI [Suspect]
     Active Substance: DURVALUMAB
     Indication: Endometrial cancer
     Dosage: 1120 MG EVERY 3 WEEKS FOR A TOTAL OF 6 DOSES
     Dates: start: 20250128
  2. IMFINZI [Suspect]
     Active Substance: DURVALUMAB
     Dosage: 1500 MG EVERY 4 WEEKS FOR A TOTAL OF 5 DOSES
  3. PACLITAXEL [Concomitant]
     Active Substance: PACLITAXEL
     Dosage: 180 MICROGRAM/SQ. METER
     Route: 065
  4. CARBOPLATIN [Concomitant]
     Active Substance: CARBOPLATIN
     Dosage: 5 AUC
     Route: 065

REACTIONS (3)
  - Neutrophil count decreased [Recovered/Resolved]
  - Peripheral sensory neuropathy [Not Recovered/Not Resolved]
  - Arthritis [Recovered/Resolved]

NARRATIVE: CASE EVENT DATE: 20250304
